FAERS Safety Report 18371867 (Version 1)
Quarter: 2020Q4

REPORT INFORMATION
  Report Type: Report from Study
  Country: US (occurrence: US)
  Receive Date: 20201012
  Receipt Date: 20201012
  Transmission Date: 20210114
  Serious: Yes (Hospitalization, Other)
  Sender: FDA-Public Use
  Company Number: US-GLAXOSMITHKLINE-US2020GSK195938

PATIENT
  Sex: Female

DRUGS (6)
  1. HYDROCODONE [Suspect]
     Active Substance: HYDROCODONE
     Indication: MIGRAINE
     Dosage: UNK
     Route: 064
  2. ALBUTEROL. [Suspect]
     Active Substance: ALBUTEROL
     Indication: ASTHMA
     Dosage: UNK
     Route: 064
  3. QUETIAPINE. [Suspect]
     Active Substance: QUETIAPINE
     Indication: DEPRESSION
     Dosage: UNK
     Route: 064
  4. PARACETAMOL [Suspect]
     Active Substance: ACETAMINOPHEN
     Indication: MIGRAINE
     Dosage: UNK
     Route: 064
  5. ACETAZOLAMIDE. [Suspect]
     Active Substance: ACETAZOLAMIDE
     Indication: IDIOPATHIC INTRACRANIAL HYPERTENSION
     Dosage: 1500 MG, 1D (3 DIVIDED DOSES)
     Route: 064
  6. SERTRALINE [Suspect]
     Active Substance: SERTRALINE HYDROCHLORIDE
     Indication: ANXIETY
     Dosage: UNK
     Route: 064

REACTIONS (10)
  - Grunting [Recovered/Resolved]
  - Dysmorphism [Recovered/Resolved]
  - Foetal exposure during pregnancy [Unknown]
  - Meconium increased [Recovered/Resolved]
  - Nasal flaring [Recovered/Resolved]
  - Use of accessory respiratory muscles [Recovered/Resolved]
  - Metabolic acidosis [Recovered/Resolved]
  - Congenital neurological disorder [Recovered/Resolved]
  - Chest X-ray abnormal [Recovered/Resolved]
  - Exposure via breast milk [Unknown]
